FAERS Safety Report 5145727-1 (Version None)
Quarter: 2006Q4

REPORT INFORMATION
  Report Type: 
  Country: None (occurrence: None)
  Receive Date: 20060915
  Receipt Date: 20060710
  Transmission Date: 20070319
  Serious: Yes (Other)
  Sender: FDA-Public Use
  Company Number: 2005119239

PATIENT
  Age: 56 Year
  Sex: Female
  Weight: 105.2345 kg

DRUGS (3)
  1. GLIPIZIDE [Suspect]
     Indication: DIABETES MELLITUS
     Dosage: 10 MG (5 MG, 2 IN 1 D)
     Dates: end: 20050801
  2. GLUCOPHAGE [Suspect]
     Indication: DIABETES MELLITUS
  3. RANITIDINE HCL [Concomitant]

REACTIONS (10)
  - BLOOD PRESSURE INCREASED [None]
  - DIABETIC NEUROPATHY [None]
  - FATIGUE [None]
  - GLYCOSYLATED HAEMOGLOBIN DECREASED [None]
  - HEADACHE [None]
  - HYPERHIDROSIS [None]
  - MENTAL DISORDER [None]
  - MUSCLE SPASMS [None]
  - MYALGIA [None]
  - WEIGHT FLUCTUATION [None]
